FAERS Safety Report 7014310-5 (Version None)
Quarter: 2010Q3

REPORT INFORMATION
  Report Type: 
  Country: None (occurrence: None)
  Receive Date: 20100924
  Receipt Date: 20100924
  Transmission Date: 20110219
  Serious: Yes (Other)
  Sender: FDA-Public Use
  Company Number: None

PATIENT
  Sex: Male
  Weight: 68.0396 kg

DRUGS (1)
  1. ZOLPIDEM [Suspect]
     Dosage: 10 MG PO
     Route: 048

REACTIONS (2)
  - AMNESIA [None]
  - SOMNAMBULISM [None]
